FAERS Safety Report 8480306-X (Version None)
Quarter: 2012Q2

REPORT INFORMATION
  Report Type: 
  Country: None (occurrence: None)
  Receive Date: 20120629
  Receipt Date: 20120619
  Transmission Date: 20120825
  Serious: No
  Sender: FDA-Public Use
  Company Number: US-ASTRAZENECA-2012SE41329

PATIENT
  Sex: Male

DRUGS (1)
  1. CRESTOR [Suspect]
     Route: 048

REACTIONS (7)
  - BLOOD GLUCOSE FLUCTUATION [None]
  - DRUG DOSE OMISSION [None]
  - BLOOD GLUCOSE ABNORMAL [None]
  - ABDOMINAL DISCOMFORT [None]
  - DIZZINESS [None]
  - FEELING ABNORMAL [None]
  - VISUAL IMPAIRMENT [None]
